FAERS Safety Report 17528558 (Version 1)
Quarter: 2020Q1

REPORT INFORMATION
  Report Type: Report from Study
  Country: None (occurrence: US)
  Receive Date: 20200312
  Receipt Date: 20200312
  Transmission Date: 20200409
  Serious: Yes (Other)
  Sender: FDA-Public Use
  Company Number: US-ABBVIE-19K-163-3188516-00

PATIENT
  Age: 23 Year
  Sex: Male

DRUGS (3)
  1. HUMIRA [Suspect]
     Active Substance: ADALIMUMAB
     Dosage: CITRATE FREE
     Route: 058
     Dates: start: 2019
  2. REMICADE [Suspect]
     Active Substance: INFLIXIMAB
     Indication: PRODUCT USED FOR UNKNOWN INDICATION
     Route: 065
  3. HUMIRA [Suspect]
     Active Substance: ADALIMUMAB
     Indication: CROHN^S DISEASE
     Dosage: CITRATE FREE
     Route: 058

REACTIONS (19)
  - Inflammation [Recovering/Resolving]
  - Blood iron decreased [Not Recovered/Not Resolved]
  - Blood iron decreased [Recovered/Resolved]
  - Eye operation [Unknown]
  - Dizziness [Unknown]
  - Haemoglobin decreased [Unknown]
  - Infusion [Unknown]
  - Hypertension [Unknown]
  - Heart rate decreased [Unknown]
  - Cardiac disorder [Unknown]
  - Cardiomyopathy [Unknown]
  - Blood pressure fluctuation [Unknown]
  - Fatigue [Unknown]
  - Adverse drug reaction [Unknown]
  - Inflammation [Unknown]
  - Loss of consciousness [Unknown]
  - Head injury [Unknown]
  - Drug ineffective [Not Recovered/Not Resolved]
  - Dyspnoea [Unknown]

NARRATIVE: CASE EVENT DATE: 20200302
